FAERS Safety Report 13763879 (Version 4)
Quarter: 2019Q1

REPORT INFORMATION
  Report Type: Report from Study
  Country: None (occurrence: NL)
  Receive Date: 20170718
  Receipt Date: 20190321
  Transmission Date: 20190417
  Serious: Yes (Other)
  Sender: FDA-Public Use
  Company Number: NL-ABBVIE-17P-114-2036394-00

PATIENT
  Age: 68 Year
  Sex: Female

DRUGS (2)
  1. DUODOPA [Suspect]
     Active Substance: CARBIDOPA\LEVODOPA
     Indication: PARKINSON^S DISEASE
     Dosage: MORNING DOSE: 4 CONTINUOUS DOSE: 1.7 EXTRA DOSE: 1.8
     Route: 050
     Dates: start: 20160530
  2. DUODOPA [Suspect]
     Active Substance: CARBIDOPA\LEVODOPA
     Dosage: MD 4.0 ML; CD 2.0 ML/HR; ED 1.6 ML
     Route: 050

REACTIONS (13)
  - Device issue [Unknown]
  - Stoma site irritation [Recovered/Resolved]
  - Stoma site inflammation [Recovered/Resolved]
  - Confusional state [Not Recovered/Not Resolved]
  - Stoma site discharge [Not Recovered/Not Resolved]
  - Stoma site haemorrhage [Not Recovered/Not Resolved]
  - Faeces hard [Not Recovered/Not Resolved]
  - Hyposmia [Not Recovered/Not Resolved]
  - Stoma site discharge [Recovering/Resolving]
  - Fibroma [Not Recovered/Not Resolved]
  - Hypogeusia [Not Recovered/Not Resolved]
  - Stoma site thrombosis [Not Recovered/Not Resolved]
  - Device deployment issue [Unknown]

NARRATIVE: CASE EVENT DATE: 201707
